FAERS Safety Report 9130220 (Version 1)
Quarter: 2013Q1

REPORT INFORMATION
  Report Type: Report from Study
  Country: DE (occurrence: DE)
  Receive Date: 20130228
  Receipt Date: 20130228
  Transmission Date: 20140127
  Serious: Yes (Death, Hospitalization)
  Sender: FDA-Public Use
  Company Number: DE-009507513-1302DEU013263

PATIENT
  Age: 67 Year
  Sex: Female
  Weight: 57.5 kg

DRUGS (1)
  1. TEMOZOLOMIDE [Suspect]
     Indication: GLIOBLASTOMA MULTIFORME
     Dosage: 120 MG, QD (DAILY 75MG/M2/KOI AT THE TIME OF RADIOTHERAPY)
     Route: 048
     Dates: start: 20130108, end: 20130125

REACTIONS (1)
  - Death [Fatal]
